FAERS Safety Report 25112359 (Version 4)
Quarter: 2025Q3

REPORT INFORMATION
  Report Type: Report from Study
  Country: US (occurrence: US)
  Receive Date: 20250324
  Receipt Date: 20250711
  Transmission Date: 20251021
  Serious: Yes (Hospitalization, Other)
  Sender: BOEHRINGER INGELHEIM
  Company Number: US-BoehringerIngelheim-2024-BI-036155

PATIENT
  Age: 73 Year
  Sex: Female

DRUGS (2)
  1. OFEV [Suspect]
     Active Substance: NINTEDANIB
     Indication: Idiopathic pulmonary fibrosis
     Dosage: WITH FOOD
     Dates: start: 20240613
  2. OFEV [Suspect]
     Active Substance: NINTEDANIB
     Dosage: WITH FOOD. 402821A,401886, 401889
     Dates: start: 20240613

REACTIONS (23)
  - Intervertebral disc protrusion [Unknown]
  - Polymyositis [Unknown]
  - Skin cancer [Unknown]
  - Cerebral haemorrhage [Unknown]
  - Surgery [Unknown]
  - Weight decreased [Unknown]
  - Dizziness [Unknown]
  - Headache [Not Recovered/Not Resolved]
  - Vomiting [Recovered/Resolved]
  - Feeling jittery [Unknown]
  - Nausea [Recovered/Resolved]
  - Balance disorder [Unknown]
  - COVID-19 [Unknown]
  - Pneumonia [Unknown]
  - Lung disorder [Unknown]
  - Diarrhoea [Not Recovered/Not Resolved]
  - Constipation [Unknown]
  - Diarrhoea [Recovered/Resolved]
  - Post procedural complication [Not Recovered/Not Resolved]
  - Fatigue [Not Recovered/Not Resolved]
  - Pyrexia [Not Recovered/Not Resolved]
  - Scoliosis [Unknown]
  - Pulmonary function test abnormal [Unknown]

NARRATIVE: CASE EVENT DATE: 20240613
